FAERS Safety Report 7642311-2 (Version None)
Quarter: 2011Q3

REPORT INFORMATION
  Report Type: 
  Country: None (occurrence: None)
  Receive Date: 20110728
  Receipt Date: 20110719
  Transmission Date: 20111222
  Serious: Yes (Hospitalization, Other)
  Sender: FDA-Public Use
  Company Number: US-ACTELION-A-NJ2011-48973

PATIENT

DRUGS (10)
  1. FUROSEMIDE [Concomitant]
  2. REQUIP [Concomitant]
  3. DIGOXIN [Concomitant]
  4. TRACLEER [Suspect]
     Indication: PULMONARY ARTERIAL HYPERTENSION
     Dosage: 125 MG, BID
     Route: 048
     Dates: start: 20100701, end: 20110511
  5. TRACLEER [Suspect]
     Dosage: UNK
     Route: 048
     Dates: start: 20110101
  6. REVATIO [Concomitant]
  7. COZAAR [Concomitant]
  8. CRESTOR [Concomitant]
  9. PLAVIX [Concomitant]
  10. HYDRALAZINE HCL [Concomitant]

REACTIONS (5)
  - FLUID RETENTION [None]
  - PLEURAL EFFUSION [None]
  - SKIN DISCOLOURATION [None]
  - OEDEMA PERIPHERAL [None]
  - DYSPNOEA [None]
